FAERS Safety Report 7819177-0 (Version None)
Quarter: 2011Q4

REPORT INFORMATION
  Report Type: 
  Country: None (occurrence: None)
  Receive Date: 20111018
  Receipt Date: 20111006
  Transmission Date: 20120403
  Serious: Yes (Hospitalization, Other)
  Sender: FDA-Public Use
  Company Number: JP-SANOFI-AVENTIS-2011SA064031

PATIENT
  Sex: Male
  Weight: 53 kg

DRUGS (16)
  1. OXALIPLATIN [Suspect]
     Indication: COLON CANCER
     Route: 041
     Dates: start: 20110421, end: 20110421
  2. FLUOROURACIL [Suspect]
     Indication: COLON CANCER
     Route: 040
     Dates: start: 20110421, end: 20110912
  3. AMLODIPINE [Concomitant]
     Route: 048
     Dates: start: 20110401
  4. ALLEGRA [Concomitant]
     Route: 048
  5. DEXAMETHASONE SODIUM PHOSPHATE [Concomitant]
     Indication: PREMEDICATION
     Route: 041
     Dates: start: 20110421, end: 20110912
  6. IMIDAPRIL HYDROCHLORIDE [Concomitant]
     Route: 048
     Dates: start: 20110401
  7. PARULEON [Concomitant]
     Route: 048
     Dates: start: 20110401
  8. FLUOROURACIL [Suspect]
     Dosage: D1-2
     Route: 041
     Dates: start: 20110421, end: 20110912
  9. OXALIPLATIN [Suspect]
     Dosage: 12 SEP 2011: 11TH CYCLE ADMINISTERED.
     Route: 041
     Dates: start: 20110509, end: 20110912
  10. LEVOLEUCOVORIN CALCIUM [Concomitant]
     Indication: COLON CANCER
     Route: 041
     Dates: start: 20110421, end: 20110912
  11. BROTIZOLAM [Concomitant]
     Route: 048
     Dates: start: 20110401
  12. MAGNESIUM OXIDE [Concomitant]
     Route: 048
     Dates: start: 20110401
  13. AMARYL [Concomitant]
     Indication: DIABETES MELLITUS
     Route: 048
  14. GASMOTIN [Concomitant]
     Route: 048
  15. EMEND [Concomitant]
     Indication: PROPHYLAXIS
     Dosage: 125-80 MG
     Route: 048
     Dates: start: 20110829, end: 20110831
  16. SENNOSIDE A+B [Concomitant]
     Route: 048
     Dates: start: 20110401

REACTIONS (1)
  - LEUKOENCEPHALOPATHY [None]
